FAERS Safety Report 5366313-4 (Version None)
Quarter: 2007Q2

REPORT INFORMATION
  Report Type: 
  Country: None (occurrence: None)
  Receive Date: 20070620
  Receipt Date: 20070620
  Transmission Date: 20071010
  Serious: Yes (Hospitalization)
  Sender: FDA-Public Use
  Company Number: None

PATIENT
  Age: 74 Year
  Sex: Male

DRUGS (2)
  1. MORPHINE [Suspect]
     Indication: PAIN
     Dosage: 400MG BID PO
     Route: 048
     Dates: start: 20070601, end: 20070606
  2. MORPHINE [Suspect]
     Dosage: 200MG PRN PO
     Route: 048

REACTIONS (1)
  - MYOCLONUS [None]
